FAERS Safety Report 10081136 (Version 4)
Quarter: 2014Q2

REPORT INFORMATION
  Report Type: Spontaneous
  Country: US (occurrence: US)
  Receive Date: 20140416
  Receipt Date: 20140530
  Transmission Date: 20141212
  Serious: Yes (Hospitalization, Other)
  Sender: FDA-Public Use
  Company Number: US-PFIZER INC-2014100071

PATIENT
  Age: 48 Year
  Sex: Female
  Weight: 52.15 kg

DRUGS (16)
  1. ZOSYN [Suspect]
     Dosage: 150 MG, 2X/DAY
     Route: 042
     Dates: start: 201402
  2. VANCOMYCIN [Suspect]
     Dosage: UNK
     Route: 042
     Dates: start: 201402
  3. ACTIMMUNE [Suspect]
     Indication: CHRONIC GRANULOMATOUS DISEASE
     Dosage: 200 UG, (TIW, 3 TIMES WEEKLY)
     Route: 058
     Dates: start: 1988, end: 201401
  4. ACTIMMUNE [Suspect]
     Dosage: 200 UG, UNK
     Route: 058
  5. BACTRIM [Suspect]
     Dosage: UNK
  6. SPORANOX [Concomitant]
     Dosage: 200 MG, DAILY
  7. FYCOMPA [Concomitant]
  8. ONFI [Concomitant]
     Dosage: UNK
  9. BENADRYL [Concomitant]
     Indication: PRURITUS
     Dosage: UNK
  10. ATIVAN [Concomitant]
     Indication: CONVULSION
     Dosage: UNK
  11. KEPPRA [Concomitant]
     Indication: EPILEPSY
     Dosage: 750 MG, 2X/DAY
  12. LAMICTAL [Concomitant]
     Indication: EPILEPSY
     Dosage: 150 MG, 2X/DAY
  13. PRISTIQ [Concomitant]
     Dosage: 20 MG, DAILY (EVERY MORNING)
  14. ZANTAC [Concomitant]
     Dosage: 20 MG, DAILY (EVERY MORNING)
  15. AMBIEN [Concomitant]
     Dosage: 10 MG, AS NEEDED
  16. LISINOPRIL [Concomitant]
     Indication: HYPERTENSION
     Dosage: 7.5 MG, DAILY

REACTIONS (10)
  - Wound infection [Unknown]
  - Convulsion [Unknown]
  - Fungal oesophagitis [Unknown]
  - Fall [Unknown]
  - Joint injury [Unknown]
  - Pyrexia [Unknown]
  - Anaemia [Unknown]
  - Neutrophil count decreased [Unknown]
  - Pruritus [Unknown]
  - Weight decreased [Unknown]
